FAERS Safety Report 18058679 (Version 1)
Quarter: 2020Q3

REPORT INFORMATION
  Report Type: Spontaneous
  Country: US (occurrence: US)
  Receive Date: 20200722
  Receipt Date: 20200722
  Transmission Date: 20201103
  Serious: No
  Sender: FDA-Public Use
  Company Number: None

PATIENT

DRUGS (2)
  1. ARIPIPRAZOLE 5MG [Suspect]
     Active Substance: ARIPIPRAZOLE
  2. HALOPERIDOL. [Suspect]
     Active Substance: HALOPERIDOL
     Route: 030

REACTIONS (3)
  - Oromandibular dystonia [None]
  - Trismus [None]
  - Dystonia [None]

NARRATIVE: CASE EVENT DATE: 20191030
